FAERS Safety Report 19207468 (Version 1)
Quarter: 2021Q2

REPORT INFORMATION
  Report Type: Spontaneous
  Country: SE (occurrence: SE)
  Receive Date: 20210503
  Receipt Date: 20210503
  Transmission Date: 20210717
  Serious: Yes (Hospitalization)
  Sender: FDA-Public Use
  Company Number: SE-PERRIGO-21SE005200

PATIENT

DRUGS (2)
  1. PARACETAMOL [Suspect]
     Active Substance: ACETAMINOPHEN
     Indication: PRODUCT USED FOR UNKNOWN INDICATION
     Dosage: 30 TABLETTER
     Route: 065
     Dates: start: 20210323, end: 20210323
  2. SERTRALINE [Suspect]
     Active Substance: SERTRALINE HYDROCHLORIDE
     Dosage: 30 TABLETTER
     Dates: start: 20210323, end: 20210323

REACTIONS (7)
  - Suicidal ideation [Unknown]
  - Toxicity to various agents [Unknown]
  - Nausea [Recovering/Resolving]
  - Mydriasis [Recovering/Resolving]
  - Dizziness [Recovering/Resolving]
  - Diplopia [Recovering/Resolving]
  - Intentional overdose [Unknown]

NARRATIVE: CASE EVENT DATE: 20210323
